FAERS Safety Report 11379163 (Version 1)
Quarter: 2015Q3

REPORT INFORMATION
  Report Type: Spontaneous
  Country: US (occurrence: None)
  Receive Date: 20150813
  Receipt Date: 20150813
  Transmission Date: 20151125
  Serious: Yes (Other)
  Sender: FDA-Public Use
  Company Number: None

PATIENT
  Age: 74 Year
  Sex: Female
  Weight: 67.59 kg

DRUGS (13)
  1. MI-ACID GAS RELIEF [Concomitant]
     Active Substance: DIMETHICONE
  2. CARDIZEM [Concomitant]
     Active Substance: DILTIAZEM HYDROCHLORIDE
  3. OMEPRAZOLE. [Concomitant]
     Active Substance: OMEPRAZOLE
  4. ZETIA [Suspect]
     Active Substance: EZETIMIBE
     Indication: BLOOD CHOLESTEROL INCREASED
     Route: 048
     Dates: start: 20150714, end: 20150719
  5. DORZOLAMIDE [Concomitant]
     Active Substance: DORZOLAMIDE
  6. LISINOPRIL. [Concomitant]
     Active Substance: LISINOPRIL
  7. ALPROZOLAM [Concomitant]
     Active Substance: ALPRAZOLAM
  8. METFORMIN [Concomitant]
     Active Substance: METFORMIN HYDROCHLORIDE
  9. CALCIUM [Concomitant]
     Active Substance: CALCIUM
  10. ASPIRIN. [Concomitant]
     Active Substance: ASPIRIN
  11. CETORAZINE [Concomitant]
  12. COMBIGAN [Concomitant]
     Active Substance: BRIMONIDINE TARTRATE\TIMOLOL MALEATE
  13. COREG [Concomitant]
     Active Substance: CARVEDILOL

REACTIONS (5)
  - Vomiting [None]
  - Decreased appetite [None]
  - Joint swelling [None]
  - Myalgia [None]
  - Asthenia [None]

NARRATIVE: CASE EVENT DATE: 20150716
